FAERS Safety Report 20968479 (Version 1)
Quarter: 2022Q2

REPORT INFORMATION
  Report Type: Spontaneous
  Country: US (occurrence: US)
  Receive Date: 20220616
  Receipt Date: 20220616
  Transmission Date: 20220721
  Serious: No
  Sender: FDA-Public Use
  Company Number: US-TARO PHARMACEUTICALS USA INC.-2022TAR00587

PATIENT

DRUGS (2)
  1. AZELAIC ACID [Suspect]
     Active Substance: AZELAIC ACID
     Indication: Rosacea
     Dosage: 1 DOSE, NOT A EVEN THE SIZE OF A PENCIL ERASER, TOPICAL (BILATERAL CHEEKS)
     Route: 061
     Dates: start: 20220413
  2. SYNTHROID [Concomitant]
     Active Substance: LEVOTHYROXINE SODIUM
     Indication: Product used for unknown indication
     Dosage: UNK
     Route: 065

REACTIONS (2)
  - Dysgeusia [Not Recovered/Not Resolved]
  - Throat tightness [Not Recovered/Not Resolved]

NARRATIVE: CASE EVENT DATE: 20220413
